FAERS Safety Report 25502158 (Version 1)
Quarter: 2025Q3

REPORT INFORMATION
  Report Type: Spontaneous
  Country: JP (occurrence: JP)
  Receive Date: 20250702
  Receipt Date: 20250702
  Transmission Date: 20251021
  Serious: Yes (Disabling, Other)
  Sender: CELLTRION
  Company Number: JP-CELLTRION INC.-2025JP020823

PATIENT

DRUGS (3)
  1. BEVACIZUMAB [Suspect]
     Active Substance: BEVACIZUMAB
     Indication: Hepatocellular carcinoma
     Route: 042
  2. ATEZOLIZUMAB [Suspect]
     Active Substance: ATEZOLIZUMAB
     Indication: Hepatocellular carcinoma
     Route: 042
  3. METHIMAZOLE [Concomitant]
     Active Substance: METHIMAZOLE

REACTIONS (5)
  - Hypothyroidism [Not Recovered/Not Resolved]
  - Graves^ disease [Recovered/Resolved]
  - Hyperthyroidism [Recovered/Resolved]
  - Therapy responder [Recovered/Resolved]
  - Intentional product use issue [Unknown]
